FAERS Safety Report 23513315 (Version 1)
Quarter: 2024Q1

REPORT INFORMATION
  Report Type: Spontaneous
  Country: US (occurrence: None)
  Receive Date: 20240210
  Receipt Date: 20240210
  Transmission Date: 20240409
  Serious: Yes (Disabling, Other)
  Sender: FDA-Public Use
  Company Number: None

PATIENT
  Age: 65 Year
  Sex: Female
  Weight: 49.5 kg

DRUGS (2)
  1. VIVITROL [Suspect]
     Active Substance: NALTREXONE
     Indication: Drug dependence
     Dosage: OTHER QUANTITY : 1 INJECTION(S);?FREQUENCY : MONTHLY;?
     Route: 030
     Dates: start: 20231219, end: 20231219
  2. VIVITROL [Suspect]
     Active Substance: NALTREXONE
     Indication: Alcoholism

REACTIONS (14)
  - Headache [None]
  - Arthralgia [None]
  - Myalgia [None]
  - Muscular weakness [None]
  - Urine odour abnormal [None]
  - Somnolence [None]
  - Irritability [None]
  - Depression [None]
  - Haematochezia [None]
  - Dry mouth [None]
  - Nocturia [None]
  - Confusional state [None]
  - Disturbance in attention [None]
  - Loss of personal independence in daily activities [None]

NARRATIVE: CASE EVENT DATE: 20231220
